FAERS Safety Report 6489641-8 (Version None)
Quarter: 2009Q4

REPORT INFORMATION
  Report Type: 
  Country: None (occurrence: None)
  Receive Date: 20091207
  Receipt Date: 20091123
  Transmission Date: 20100525
  Serious: Yes (Hospitalization)
  Sender: FDA-Public Use
  Company Number: 2009AC000015

PATIENT
  Age: 57 Year
  Sex: Male

DRUGS (4)
  1. DIGOXIN [Suspect]
     Dosage: PO
     Route: 048
     Dates: start: 20060101
  2. COUMADIN [Concomitant]
  3. CRESTOR [Concomitant]
  4. LOVENOX [Concomitant]

REACTIONS (4)
  - ATRIAL FIBRILLATION [None]
  - ECONOMIC PROBLEM [None]
  - INJURY [None]
  - POST PROCEDURAL COMPLICATION [None]
